FAERS Safety Report 21176777 (Version 3)
Quarter: 2022Q3

REPORT INFORMATION
  Report Type: Spontaneous
  Country: FI (occurrence: FI)
  Receive Date: 20220805
  Receipt Date: 20220913
  Transmission Date: 20221027
  Serious: No
  Sender: FDA-Public Use
  Company Number: FI-JNJFOC-20220740288

PATIENT
  Age: 52 Year
  Sex: Male

DRUGS (1)
  1. SIMPONI [Suspect]
     Active Substance: GOLIMUMAB
     Indication: Product used for unknown indication
     Dosage: 100.00 MG/ML
     Route: 058

REACTIONS (3)
  - Syringe issue [Unknown]
  - Inappropriate schedule of product administration [Unknown]
  - Product administration error [Unknown]

NARRATIVE: CASE EVENT DATE: 20220101
